FAERS Safety Report 17950519 (Version 3)
Quarter: 2020Q3

REPORT INFORMATION
  Report Type: Spontaneous
  Country: IT (occurrence: IT)
  Receive Date: 20200626
  Receipt Date: 20200703
  Transmission Date: 20201103
  Serious: Yes (Hospitalization, Disabling)
  Sender: FDA-Public Use
  Company Number: IT-ROCHE-2630881

PATIENT
  Age: 56 Year
  Sex: Male
  Weight: 90 kg

DRUGS (8)
  1. ROACTEMRA [Suspect]
     Active Substance: TOCILIZUMAB
     Indication: PNEUMONIA
     Dosage: FREQUENCY: TOTAL
     Route: 042
     Dates: start: 20200316, end: 20200316
  2. HYDROXYCHLOROQUINE SULFATE. [Concomitant]
     Active Substance: HYDROXYCHLOROQUINE SULFATE
     Indication: CORONAVIRUS INFECTION
     Route: 048
     Dates: start: 20200320, end: 20200401
  3. CEFTRIAXONE. [Concomitant]
     Active Substance: CEFTRIAXONE
     Route: 042
     Dates: start: 20200315, end: 20200320
  4. CORTICOSTEROIDS [Concomitant]
     Active Substance: CORTICOSTEROID NOS
     Route: 042
  5. ROACTEMRA [Suspect]
     Active Substance: TOCILIZUMAB
     Indication: CORONAVIRUS INFECTION
  6. ROACTEMRA [Suspect]
     Active Substance: TOCILIZUMAB
     Indication: PNEUMONIA
     Route: 058
     Dates: start: 20200316, end: 20200317
  7. ROACTEMRA [Suspect]
     Active Substance: TOCILIZUMAB
     Indication: CORONAVIRUS INFECTION
  8. AZITHROMYCIN DIHYDRATE. [Concomitant]
     Active Substance: AZITHROMYCIN DIHYDRATE
     Route: 048
     Dates: start: 20200315, end: 20200320

REACTIONS (8)
  - Arthralgia [Unknown]
  - Product use in unapproved indication [Unknown]
  - Pharyngeal abscess [Recovered/Resolved with Sequelae]
  - Respiratory gas exchange disorder [Unknown]
  - Motor dysfunction [Unknown]
  - Neck pain [Unknown]
  - Off label use [Unknown]
  - Dural abscess [Unknown]

NARRATIVE: CASE EVENT DATE: 20200407
